FAERS Safety Report 9294150 (Version 4)
Quarter: 2013Q4

REPORT INFORMATION
  Report Type: Report from Study
  Country: ES (occurrence: ES)
  Receive Date: 20130516
  Receipt Date: 20131106
  Transmission Date: 20140711
  Serious: Yes (Hospitalization)
  Sender: FDA-Public Use
  Company Number: ES-VERTEX PHARMACEUTICALS INC-2013-006089

PATIENT
  Age: 46 Year
  Sex: Male
  Weight: 54.8 kg

DRUGS (9)
  1. VX-950 (TELAPREVIR) [Suspect]
     Indication: HEPATITIS C
     Dosage: 1125 MG, TID
     Route: 048
     Dates: start: 20120829, end: 20121121
  2. VX-950 (TELAPREVIR) [Suspect]
     Indication: HIV INFECTION
  3. RIBAVIRIN [Suspect]
     Indication: HIV INFECTION
     Dosage: 400 MG, BID
     Route: 048
     Dates: start: 20120829, end: 20130730
  4. RIBAVIRIN [Suspect]
     Indication: HEPATITIS C
     Dosage: DOSAGE FORM: UNSPECIFIED
     Route: 048
     Dates: start: 20120829, end: 20130730
  5. PEGINTERFERON ALFA 2A [Suspect]
     Indication: HIV INFECTION
     Dosage: 180 ?G, QW
     Route: 058
     Dates: start: 20120829
  6. PEGINTERFERON ALFA 2A [Suspect]
     Indication: HEPATITIS C
     Dosage: 135 ?G, QW
     Route: 058
     Dates: start: 20130513, end: 20130728
  7. EFAVIRENZ [Concomitant]
     Indication: HIV INFECTION
     Dosage: DOSAGE FORM: UNSPECIFIED
     Route: 048
     Dates: start: 2003
  8. TENOFOVIR [Concomitant]
     Indication: HIV INFECTION
     Dosage: DOSAGE FORM: UNSPECIFIED
     Route: 048
  9. EMTRICITABINE [Concomitant]
     Indication: HIV INFECTION
     Dosage: DOSAGE FORM: UNSPECIFIED
     Route: 048
     Dates: start: 2007

REACTIONS (1)
  - Lung infiltration [Recovered/Resolved]
